FAERS Safety Report 14245019 (Version 1)
Quarter: 2017Q4

REPORT INFORMATION
  Report Type: Report from Study
  Country: None (occurrence: IT)
  Receive Date: 20171201
  Receipt Date: 20171201
  Transmission Date: 20180321
  Serious: Yes (Other)
  Sender: FDA-Public Use
  Company Number: IT-ABBVIE-17K-083-2181253-00

PATIENT
  Sex: Male

DRUGS (1)
  1. DUODOPA [Suspect]
     Active Substance: CARBIDOPA\LEVODOPA
     Indication: PARKINSON^S DISEASE
     Dosage: MD 9+3??CR 4.3??ED 4
     Route: 050
     Dates: start: 20161018

REACTIONS (3)
  - On and off phenomenon [Unknown]
  - Skin discolouration [Unknown]
  - Hyperkinesia [Unknown]

NARRATIVE: CASE EVENT DATE: 2017
